FAERS Safety Report 15178830 (Version 1)
Quarter: 2018Q3

REPORT INFORMATION
  Report Type: Report from Study
  Country: CA (occurrence: CA)
  Receive Date: 20180722
  Receipt Date: 20180722
  Transmission Date: 20181010
  Serious: Yes (Hospitalization)
  Sender: FDA-Public Use
  Company Number: PHHY2018CA047528

PATIENT
  Sex: Male

DRUGS (1)
  1. RYDAPT [Suspect]
     Active Substance: MIDOSTAURIN
     Indication: ACUTE MYELOID LEUKAEMIA
     Dosage: UNK
     Route: 048

REACTIONS (4)
  - Infection [Unknown]
  - Drug effect incomplete [Unknown]
  - Neutrophil count decreased [Unknown]
  - Platelet count decreased [Unknown]
